FAERS Safety Report 6566778-6 (Version None)
Quarter: 2010Q1

REPORT INFORMATION
  Report Type: 
  Country: None (occurrence: None)
  Receive Date: 20100202
  Receipt Date: 20100128
  Transmission Date: 20100710
  Serious: Yes (Death, Life-Threatening, Hospitalization)
  Sender: FDA-Public Use
  Company Number: US-ELI_LILLY_AND_COMPANY-US200911007312

PATIENT
  Sex: Female

DRUGS (14)
  1. GEMCITABINE HCL [Suspect]
     Indication: NEOPLASM
     Dosage: 1920 MG, UNK
     Route: 042
     Dates: start: 20080922
  2. OTHER PHARMA COMPANY INV DRUG [Suspect]
     Indication: NEOPLASM
     Dosage: 1070 MG, OTHER
     Route: 042
     Dates: start: 20080922
  3. ASPIRIN [Concomitant]
     Dosage: 325 MG, DAILY (1/D)
  4. ATENOLOL [Concomitant]
     Dosage: 100 MG, DAILY (1/D)
  5. CALCIUM [Concomitant]
     Dosage: 1800 MG, DAILY (1/D)
  6. FLUOXETINE [Concomitant]
     Dosage: 20 MG, DAILY (1/D)
  7. HYDROCHLOROTHIAZIDE [Concomitant]
     Dosage: 25 MG, DAILY (1/D)
  8. ATORVASTATIN CALCIUM [Concomitant]
     Dosage: 20 MG, DAILY (1/D)
  9. ESOMEPRAZOLE MAGNESIUM [Concomitant]
     Dosage: 40 MG, DAILY (1/D)
  10. LEVOTHYROXINE SODIUM [Concomitant]
     Dosage: 100 UG, DAILY (1/D)
  11. MOEXIPRIL HCL [Concomitant]
     Dosage: 15 MG, DAILY (1/D)
  12. METFORMIN HCL [Concomitant]
     Dosage: 500 MG, 2/D
  13. GEMFIBROZIL [Concomitant]
     Dosage: 600 MG, 2/D
  14. CLOPIDOGREL BISULFATE [Concomitant]
     Dosage: 75 MG, DAILY (1/D)

REACTIONS (4)
  - ANAEMIA [None]
  - HYPOXIA [None]
  - METABOLIC ACIDOSIS [None]
  - RENAL FAILURE ACUTE [None]
